FAERS Safety Report 5177325-8 (Version None)
Quarter: 2006Q4

REPORT INFORMATION
  Report Type: 
  Country: None (occurrence: None)
  Receive Date: 20061218
  Receipt Date: 20060721
  Transmission Date: 20070319
  Serious: No
  Sender: FDA-Public Use
  Company Number: US-AMGEN-KDL187157

PATIENT
  Sex: Male

DRUGS (2)
  1. ENBREL [Suspect]
     Indication: RHEUMATOID ARTHRITIS
     Route: 058
     Dates: end: 20060101
  2. PREDNISONE TAB [Concomitant]

REACTIONS (4)
  - CONDITION AGGRAVATED [None]
  - LOSS OF CONSCIOUSNESS [None]
  - PAIN [None]
  - RHEUMATOID ARTHRITIS [None]
